FAERS Safety Report 19641757 (Version 1)
Quarter: 2021Q3

REPORT INFORMATION
  Report Type: Spontaneous
  Country: CN (occurrence: CN)
  Receive Date: 20210730
  Receipt Date: 20210730
  Transmission Date: 20211014
  Serious: Yes (Other)
  Sender: FDA-Public Use
  Company Number: CN-UCBSA-2021036645

PATIENT
  Age: 62 Year
  Sex: Male

DRUGS (6)
  1. CALCIUM GLUCONATE. [Concomitant]
     Active Substance: CALCIUM GLUCONATE
     Indication: DERMATITIS ALLERGIC
     Dosage: 1 GRAM, ONCE DAILY (QD)
  2. SULPERAZON [Suspect]
     Active Substance: CEFOPERAZONE SODIUM\SULBACTAM SODIUM
     Indication: PNEUMONIA
     Dosage: 1 GRAM, 3X/DAY (TID)
     Route: 041
     Dates: start: 20210710, end: 20210715
  3. CALAMINE [Concomitant]
     Active Substance: CALAMINE\FERRIC OXIDE RED\ZINC OXIDE
     Indication: DERMATITIS ALLERGIC
     Dosage: UNK, 3X/DAY (TID)
  4. DEXTROMETHORPHAN [Concomitant]
     Active Substance: DEXTROMETHORPHAN
     Indication: DERMATITIS ALLERGIC
     Dosage: 5 MILLIGRAM, ONCE DAILY (QD)
  5. KETOTIFEN [Concomitant]
     Active Substance: KETOTIFEN
     Indication: DERMATITIS ALLERGIC
     Dosage: 1 MILLIGRAM, 2X/DAY (BID)
     Route: 048
  6. LEVOCETIRIZINE [Suspect]
     Active Substance: LEVOCETIRIZINE
     Indication: DERMATITIS ALLERGIC
     Dosage: 5 MILLIGRAM, ONCE DAILY (QD)
     Route: 048

REACTIONS (2)
  - Dermatitis allergic [Recovering/Resolving]
  - Product use in unapproved indication [Unknown]

NARRATIVE: CASE EVENT DATE: 20210715
